APPROVED DRUG PRODUCT: SUTENT
Active Ingredient: SUNITINIB MALATE
Strength: EQ 50MG BASE
Dosage Form/Route: CAPSULE;ORAL
Application: N021938 | Product #003 | TE Code: AB
Applicant: CP PHARMACEUTICALS INTERNATIONAL CV
Approved: Jan 26, 2006 | RLD: Yes | RS: Yes | Type: RX